FAERS Safety Report 19469702 (Version 5)
Quarter: 2023Q1

REPORT INFORMATION
  Report Type: Spontaneous
  Country: GB (occurrence: GB)
  Receive Date: 20210628
  Receipt Date: 20230206
  Transmission Date: 20230417
  Serious: Yes (Disabling, Other)
  Sender: FDA-Public Use
  Company Number: GB-GLAXOSMITHKLINE-B0662850A

PATIENT

DRUGS (8)
  1. ALLI [Suspect]
     Active Substance: ORLISTAT
     Indication: Obesity
     Dosage: 1 DF, TID (3 DF QD)
     Route: 048
     Dates: start: 200903, end: 200906
  2. FLUOXETINE [Suspect]
     Active Substance: FLUOXETINE HYDROCHLORIDE
     Indication: Depression
     Dosage: 20 MG, QD
     Route: 048
     Dates: start: 2000
  3. PREMPAK [Suspect]
     Active Substance: ESTROGENS, CONJUGATED\NORGESTREL
     Indication: Menopausal symptoms
     Dosage: 1 DF, QD
     Route: 048
     Dates: start: 2006, end: 20090630
  4. NORGESTREL [Suspect]
     Active Substance: NORGESTREL
     Indication: Product used for unknown indication
     Dosage: UNK
     Route: 048
  5. NORGESTREL [Suspect]
     Active Substance: NORGESTREL
     Dosage: UNK
     Route: 065
  6. LEVONORGESTREL [Suspect]
     Active Substance: LEVONORGESTREL
     Indication: Product used for unknown indication
     Dosage: 1 DF, QD
     Route: 048
  7. LEVONORGESTREL [Suspect]
     Active Substance: LEVONORGESTREL
     Dosage: UNK
     Route: 065
  8. MELOXICAM [Concomitant]
     Active Substance: MELOXICAM
     Indication: Arthralgia
     Dosage: 1 DF, QD
     Route: 048
     Dates: start: 20090225, end: 20090325

REACTIONS (5)
  - Depressed mood [Recovered/Resolved]
  - Depression [Recovered/Resolved]
  - Crying [Recovered/Resolved]
  - Hot flush [Recovered/Resolved]
  - Menopausal symptoms [Recovered/Resolved]

NARRATIVE: CASE EVENT DATE: 20090401
